FAERS Safety Report 10055728 (Version 2)
Quarter: 2014Q2

REPORT INFORMATION
  Report Type: Spontaneous
  Country: FR (occurrence: FR)
  Receive Date: 20140403
  Receipt Date: 20140416
  Transmission Date: 20141212
  Serious: Yes (Hospitalization)
  Sender: FDA-Public Use
  Company Number: FR-TEVA-471296ISR

PATIENT
  Age: 75 Year
  Sex: Male

DRUGS (13)
  1. CISPLATIN [Suspect]
     Indication: NON-HODGKIN^S LYMPHOMA
     Dosage: 200 MG/KG DAILY;
     Route: 042
     Dates: start: 20140225, end: 20140225
  2. METFORMIN 1000 MG/KG [Suspect]
     Dosage: 3000 MG/KG DAILY; LONG STANDING TREATMENT, ON 05-MAR-2014 REPLACED BY INSULIN
     Route: 048
     Dates: end: 20140305
  3. METHOTREXATE [Suspect]
     Dosage: 40 MG/KG DAILY;
     Route: 042
     Dates: start: 20140225, end: 20140228
  4. G-CSF (TEVAGRASTIM/RATIOGRASTIM) [Suspect]
     Route: 042
     Dates: start: 20140302
  5. BACTRIM FORTE [Suspect]
     Dosage: LONG STANDING TREATMENT
     Route: 048
     Dates: end: 20140305
  6. ZELITREX [Suspect]
     Dosage: 1000 MG/KG DAILY; LONG STANDING TREATMENT, ON 05-MAR-2014 REPLACED BY ZOVIRAX
     Route: 048
     Dates: end: 20140305
  7. RITUXIMAB [Suspect]
     Dosage: 750 MG/KG DAILY;
     Route: 042
     Dates: start: 20140225, end: 20140225
  8. CYTARABINE [Suspect]
     Indication: NON-HODGKIN^S LYMPHOMA
     Dosage: 4000 MG/KG DAILY;
     Route: 042
     Dates: start: 20140226, end: 20140227
  9. LYRICA [Suspect]
     Dosage: 200 MG/KG DAILY; LONG STANDING TREATMENRT
     Route: 048
  10. ZYLORIC [Suspect]
     Indication: PROPHYLAXIS
     Dosage: PREVENTIVE TREATMENT FOR TUMOUR LYSIS SYNDROME
     Route: 048
     Dates: start: 20140225, end: 20140306
  11. DEXAMETHASONE [Concomitant]
     Indication: NON-HODGKIN^S LYMPHOMA
     Dosage: R-DHAP (RITUXIMAB, DEXAMETHASONE, CYTARABINE, CISPLATIN) PROTOCOL
     Dates: start: 20140225
  12. HYPERHYDRATATION ALKALINE [Concomitant]
  13. CHIBROCADRON [Concomitant]

REACTIONS (5)
  - Renal failure acute [Recovering/Resolving]
  - Malaise [Recovering/Resolving]
  - Loss of consciousness [Recovering/Resolving]
  - Polyuria [Recovering/Resolving]
  - Renal tubular necrosis [Recovering/Resolving]
